FAERS Safety Report 9575769 (Version 1)
Quarter: 2013Q4

REPORT INFORMATION
  Report Type: Spontaneous
  Country: US (occurrence: US)
  Receive Date: 20131001
  Receipt Date: 20131001
  Transmission Date: 20140711
  Serious: No
  Sender: FDA-Public Use
  Company Number: US-AMGEN-USASP2012056532

PATIENT
  Age: 70 Year
  Sex: Male

DRUGS (1)
  1. PROCRIT [Suspect]
     Indication: ANAEMIA OF CHRONIC DISEASE
     Dosage: 20000 IU, QWK
     Route: 058

REACTIONS (1)
  - Incorrect route of drug administration [Unknown]
